FAERS Safety Report 6703211-5 (Version None)
Quarter: 2010Q2

REPORT INFORMATION
  Report Type: 
  Country: None (occurrence: None)
  Receive Date: 20100430
  Receipt Date: 20100416
  Transmission Date: 20101027
  Serious: Yes (Hospitalization)
  Sender: FDA-Public Use
  Company Number: US-RANBAXY-2010US-33232

PATIENT

DRUGS (15)
  1. GANCICLOVIR [Suspect]
     Indication: ANTIVIRAL PROPHYLAXIS
     Dosage: 1000 MG, 3 IN 1 D
     Route: 048
     Dates: start: 20080417
  2. MARIBAVIR (PLACEBO) [Suspect]
     Indication: ANTIVIRAL PROPHYLAXIS
     Dosage: 100 MG, 2 IN 1 D
     Route: 048
     Dates: start: 20080417
  3. ACYCLOVIR (PLACEBO) [Suspect]
     Indication: ANTIVIRAL PROPHYLAXIS
     Dosage: 400 MG, 2 IN 1 D
     Route: 048
     Dates: start: 20080417
  4. ASPIRIN [Concomitant]
     Indication: COAGULOPATHY
     Route: 065
  5. BACTRIM [Concomitant]
     Indication: ANTIFUNGAL PROPHYLAXIS
     Route: 065
  6. CELLCEPT [Concomitant]
     Indication: PROPHYLAXIS AGAINST TRANSPLANT REJECTION
     Route: 065
  7. COLACE [Concomitant]
     Indication: CONSTIPATION PROPHYLAXIS
     Route: 065
  8. LASIX [Concomitant]
     Indication: ASCITES
     Route: 065
  9. LEXAPRO [Concomitant]
     Indication: ANXIETY DISORDER
     Route: 065
  10. MULTI-VITAMIN [Concomitant]
     Indication: MEDICAL DIET
     Route: 065
  11. NYSTATIN [Concomitant]
     Indication: INFECTION PROPHYLAXIS
     Route: 065
  12. OXYCODONE [Concomitant]
     Indication: PROCEDURAL PAIN
     Route: 065
  13. PREDNISONE [Concomitant]
     Indication: PROPHYLAXIS AGAINST TRANSPLANT REJECTION
     Route: 065
  14. PROGRAF [Concomitant]
     Indication: PROPHYLAXIS AGAINST TRANSPLANT REJECTION
     Route: 065
  15. PROTONIX [Concomitant]
     Indication: PROPHYLAXIS AGAINST GASTROINTESTINAL ULCER
     Route: 065

REACTIONS (2)
  - BRADYCARDIA [None]
  - PNEUMONIA [None]
